FAERS Safety Report 6071087-8 (Version None)
Quarter: 2009Q1

REPORT INFORMATION
  Report Type: 
  Country: None (occurrence: None)
  Receive Date: 20090209
  Receipt Date: 20081027
  Transmission Date: 20090719
  Serious: No
  Sender: FDA-Public Use
  Company Number: A0753668A

PATIENT
  Age: 40 Year
  Sex: Male

DRUGS (2)
  1. PAXIL CR [Suspect]
     Route: 048
     Dates: start: 20020101
  2. CHANTIX [Concomitant]

REACTIONS (3)
  - EYE PAIN [None]
  - NECK PAIN [None]
  - PARAESTHESIA [None]
